FAERS Safety Report 7775841 (Version 5)
Quarter: 2013Q3

REPORT INFORMATION
  Report Type: Report from Study
  Country: GB (occurrence: GB)
  Receive Date: 20110127
  Receipt Date: 20130820
  Transmission Date: 20140515
  Serious: Yes (Death, Other)
  Sender: FDA-Public Use
  Company Number: GB-ABBOTT-11P-167-0700487-00

PATIENT
  Age: 78 Year
  Sex: Male

DRUGS (2)
  1. HUMIRA 40 MG/ 0.8 ML PRE-FILLED SYRINGE [Suspect]
     Indication: RHEUMATOID ARTHRITIS
     Route: 058
     Dates: start: 20031215, end: 20100319
  2. HYDROXYCHLOROQUINE [Concomitant]
     Indication: PRODUCT USED FOR UNKNOWN INDICATION

REACTIONS (6)
  - Hypoxic-ischaemic encephalopathy [Fatal]
  - Asphyxia [Fatal]
  - Completed suicide [Fatal]
  - Laceration [Unknown]
  - Laryngeal injury [Unknown]
  - Arterial injury [Unknown]
